FAERS Safety Report 5105896-6 (Version None)
Quarter: 2006Q3

REPORT INFORMATION
  Report Type: 
  Country: None (occurrence: None)
  Receive Date: 20060912
  Receipt Date: 20060824
  Transmission Date: 20061208
  Serious: Yes (Other)
  Sender: FDA-Public Use
  Company Number: US200608005101

PATIENT
  Age: 31 Year
  Sex: Female

DRUGS (2)
  1. XIGRIS [Suspect]
     Indication: SEPSIS
     Dosage: INTRAVENOUS
     Route: 042
     Dates: start: 20060822
  2. LOVENOX [Concomitant]

REACTIONS (3)
  - ABDOMINAL ABSCESS [None]
  - BACTERIAL INFECTION [None]
  - DEEP VEIN THROMBOSIS [None]
